FAERS Safety Report 8327695-4 (Version None)
Quarter: 2012Q2

REPORT INFORMATION
  Report Type: 
  Country: None (occurrence: None)
  Receive Date: 20120502
  Receipt Date: 20120426
  Transmission Date: 20120825
  Serious: No
  Sender: FDA-Public Use
  Company Number: US-PFIZER INC-2012104204

PATIENT
  Sex: Female

DRUGS (4)
  1. LIPITOR [Suspect]
     Dosage: UNK
  2. LYRICA [Suspect]
     Dosage: UNK
  3. NORVASC [Suspect]
     Dosage: UNK
  4. CELEBREX [Suspect]
     Dosage: UNK

REACTIONS (4)
  - ARTHRALGIA [None]
  - INSOMNIA [None]
  - BACK PAIN [None]
  - NERVOUSNESS [None]
